FAERS Safety Report 16039606 (Version 1)
Quarter: 2019Q1

REPORT INFORMATION
  Report Type: Spontaneous
  Country: DE (occurrence: DE)
  Receive Date: 20190306
  Receipt Date: 20190306
  Transmission Date: 20190418
  Serious: Yes (Death, Life-Threatening, Hospitalization)
  Sender: FDA-Public Use
  Company Number: DE-TEVA-2019-DE-1017855

PATIENT
  Age: 70 Year
  Sex: Female
  Weight: 101 kg

DRUGS (31)
  1. IRINOTECAN [Suspect]
     Active Substance: IRINOTECAN
     Dosage: DAILY DOSE: 250 MG MILLGRAM(S) EVERY 2 WEEKS
     Route: 042
     Dates: start: 20130325, end: 20130325
  2. FOLINIC ACID [Suspect]
     Active Substance: LEUCOVORIN
     Indication: COLORECTAL CANCER METASTATIC
     Route: 042
     Dates: start: 20130305, end: 20130305
  3. FOLINIC ACID [Suspect]
     Active Substance: LEUCOVORIN
     Dosage: DAILY DOSE: 500 MG MILLGRAM(S) EVERY 2 WEEKS
     Route: 042
     Dates: start: 20130219, end: 20130219
  4. AVASTIN [Suspect]
     Active Substance: BEVACIZUMAB
     Indication: COLORECTAL CANCER METASTATIC
     Dosage: DAILY DOSE: 500 MG MILLGRAM(S) EVERY 2 WEEKS
     Route: 042
     Dates: start: 20130527
  5. HEPARIN [Concomitant]
     Active Substance: HEPARIN SODIUM
     Indication: PULMONARY EMBOLISM
     Route: 065
     Dates: start: 20130506, end: 20130621
  6. 5-FLUOROURACIL [Suspect]
     Active Substance: FLUOROURACIL
     Dosage: DAILY DOSE: 6000 MG MILLGRAM(S) EVERY 2 WEEKS
     Route: 041
     Dates: start: 20130219, end: 20130221
  7. IRINOTECAN [Suspect]
     Active Substance: IRINOTECAN
     Dosage: DAILY DOSE: 350 MG MILLGRAM(S) EVERY 2 WEEKS
     Route: 042
     Dates: start: 20130219, end: 20130219
  8. FOLINIC ACID [Suspect]
     Active Substance: LEUCOVORIN
     Dosage: DAILY DOSE: 500 MG MILLGRAM(S) EVERY 2 WEEKS
     Route: 042
     Dates: start: 20130408, end: 20130408
  9. FOLINIC ACID [Suspect]
     Active Substance: LEUCOVORIN
     Dosage: DAILY DOSE: 500 MG MILLGRAM(S) EVERY 2 WEEKS
     Route: 042
     Dates: start: 20130527, end: 20130527
  10. AMLODIPIN [Concomitant]
     Active Substance: AMLODIPINE BESYLATE
     Indication: HYPERTENSION
     Route: 065
     Dates: end: 20130721
  11. 5-FLUOROURACIL [Suspect]
     Active Substance: FLUOROURACIL
     Dosage: DAILY DOSE: 4000 MG MILLGRAM(S) EVERY 2 WEEKS
     Route: 041
     Dates: start: 20130408, end: 20130410
  12. 5-FLUOROURACIL [Suspect]
     Active Substance: FLUOROURACIL
     Dosage: DAILY DOSE: 600 MG MILLGRAM(S) EVERY 2 WEEKS
     Route: 040
     Dates: start: 20130527, end: 20130527
  13. 5-FLUOROURACIL [Suspect]
     Active Substance: FLUOROURACIL
     Dosage: DAILY DOSE: 600 MG MILLGRAM(S) EVERY 2 WEEKS
     Route: 040
     Dates: start: 20130325, end: 20130325
  14. IRINOTECAN [Suspect]
     Active Substance: IRINOTECAN
     Indication: COLORECTAL CANCER METASTATIC
     Dosage: DAILY DOSE: 250 MG MILLGRAM(S) EVERY 2 WEEKS
     Route: 042
     Dates: start: 20130408, end: 20130408
  15. IRINOTECAN [Suspect]
     Active Substance: IRINOTECAN
     Dosage: DAILY DOSE: 350 MG MILLGRAM(S) EVERY 2 WEEKS
     Route: 042
     Dates: start: 20130305, end: 20130305
  16. FOLINIC ACID [Suspect]
     Active Substance: LEUCOVORIN
     Dosage: DAILY DOSE: 500 MG MILLGRAM(S) EVERY 2 WEEKS
     Route: 042
     Dates: start: 20130513, end: 20130513
  17. 5-FLUOROURACIL [Suspect]
     Active Substance: FLUOROURACIL
     Dosage: DAILY DOSE: 4000 MG MILLGRAM(S) EVERY 2 WEEKS
     Route: 041
     Dates: start: 20130325, end: 20130327
  18. 5-FLUOROURACIL [Suspect]
     Active Substance: FLUOROURACIL
     Dosage: DAILY DOSE: 6000 MG MILLGRAM(S) EVERY 2 WEEKS
     Route: 041
     Dates: start: 20130305, end: 20130307
  19. 5-FLUOROURACIL [Suspect]
     Active Substance: FLUOROURACIL
     Dosage: DAILY DOSE: 500 MG MILLGRAM(S) EVERY 2 WEEKS
     Route: 040
     Dates: start: 20130408, end: 20130408
  20. FOLINIC ACID [Suspect]
     Active Substance: LEUCOVORIN
     Dosage: DAILY DOSE: 500 MG MILLGRAM(S) EVERY 2 WEEKS
     Route: 042
     Dates: start: 20130325, end: 20130325
  21. 5-FLUOROURACIL [Suspect]
     Active Substance: FLUOROURACIL
     Dosage: DAILY DOSE: 600 MG MILLGRAM(S) EVERY 2 WEEKS
     Route: 040
     Dates: start: 20130429, end: 20130429
  22. 5-FLUOROURACIL [Suspect]
     Active Substance: FLUOROURACIL
     Dosage: DAILY DOSE: 4000 MG MILLGRAM(S) EVERY 2 WEEKS
     Route: 041
     Dates: start: 20130527, end: 20130529
  23. 5-FLUOROURACIL [Suspect]
     Active Substance: FLUOROURACIL
     Route: 041
     Dates: start: 20130429, end: 20130430
  24. FOLINIC ACID [Suspect]
     Active Substance: LEUCOVORIN
     Dosage: DAILY DOSE: 500 MG MILLGRAM(S) EVERY 2 WEEKS
     Route: 042
     Dates: start: 20130429, end: 20130429
  25. 5-FLUOROURACIL [Suspect]
     Active Substance: FLUOROURACIL
     Indication: COLORECTAL CANCER METASTATIC
     Route: 040
     Dates: start: 20130305, end: 20130305
  26. 5-FLUOROURACIL [Suspect]
     Active Substance: FLUOROURACIL
     Dosage: DAILY DOSE: 600 MG MILLGRAM(S) EVERY 2 WEEKS
     Route: 040
     Dates: start: 20130513, end: 20130513
  27. IRINOTECAN [Suspect]
     Active Substance: IRINOTECAN
     Dosage: DAILY DOSE: 250 MG MILLGRAM(S) EVERY 2 WEEKS
     Route: 042
     Dates: start: 20130429, end: 20130429
  28. AVASTIN [Suspect]
     Active Substance: BEVACIZUMAB
     Dosage: DAILY DOSE: 500 MG MILLGRAM(S) EVERY 2 WEEKS
     Route: 042
     Dates: start: 20130219
  29. 5-FLUOROURACIL [Suspect]
     Active Substance: FLUOROURACIL
     Dosage: DAILY DOSE: 800 MG MILLGRAM(S) EVERY 2 WEEKS
     Route: 040
     Dates: start: 20130219, end: 20130219
  30. IRINOTECAN [Suspect]
     Active Substance: IRINOTECAN
     Dosage: DAILY DOSE: 250 MG MILLGRAM(S) EVERY 2 WEEKS
     Route: 042
     Dates: start: 20130305, end: 20130305
  31. LISINOPRIL. [Concomitant]
     Active Substance: LISINOPRIL
     Indication: HYPERTENSION
     Route: 065
     Dates: end: 20130621

REACTIONS (3)
  - Pulmonary embolism [Recovered/Resolved with Sequelae]
  - Ileus [Fatal]
  - Mucosal inflammation [Recovered/Resolved]

NARRATIVE: CASE EVENT DATE: 20130312
